FAERS Safety Report 13073576 (Version 3)
Quarter: 2017Q1

REPORT INFORMATION
  Report Type: Spontaneous
  Country: US (occurrence: US)
  Receive Date: 20161229
  Receipt Date: 20170310
  Transmission Date: 20170428
  Serious: Yes (Hospitalization, Other)
  Sender: FDA-Public Use
  Company Number: US-009507513-1612USA010314

PATIENT
  Sex: Female
  Weight: 134.8 kg

DRUGS (9)
  1. TEMODAR [Suspect]
     Active Substance: TEMOZOLOMIDE
     Indication: METASTASES TO LUNG
     Dosage: UNK
     Route: 048
     Dates: end: 201605
  2. FERROUS SULFATE. [Concomitant]
     Active Substance: FERROUS SULFATE
     Dosage: UNK
  3. CALCIUM (UNSPECIFIED) [Concomitant]
     Active Substance: CALCIUM
     Dosage: UNK
  4. AVASTATIN (ATORVASTATIN CALCIUM) [Suspect]
     Active Substance: ATORVASTATIN CALCIUM
     Dosage: UNK
     Dates: end: 201605
  5. FOLIC ACID. [Concomitant]
     Active Substance: FOLIC ACID
     Dosage: UNK
  6. BIOTIN [Concomitant]
     Active Substance: BIOTIN
     Dosage: UNK
  7. TEMODAR [Suspect]
     Active Substance: TEMOZOLOMIDE
     Indication: METASTASES TO CENTRAL NERVOUS SYSTEM
  8. ZOFRAN [Concomitant]
     Active Substance: ONDANSETRON HYDROCHLORIDE
     Dosage: UNK
  9. JINTELI [Concomitant]
     Active Substance: ETHINYL ESTRADIOL\NORETHINDRONE ACETATE
     Dosage: UNK

REACTIONS (5)
  - Guillain-Barre syndrome [Unknown]
  - Fatigue [Unknown]
  - Adverse event [Unknown]
  - Diarrhoea [Unknown]
  - Irritability [Unknown]
